FAERS Safety Report 25509657 (Version 1)
Quarter: 2025Q3

REPORT INFORMATION
  Report Type: Spontaneous
  Country: EU (occurrence: EU)
  Receive Date: 20250703
  Receipt Date: 20250703
  Transmission Date: 20251020
  Serious: Yes (Other)
  Sender: ABBVIE
  Company Number: EU-ABBVIE-6313285

PATIENT
  Age: 57 Year
  Sex: Female

DRUGS (6)
  1. ATOGEPANT [Suspect]
     Active Substance: ATOGEPANT
     Indication: Migraine prophylaxis
     Route: 048
     Dates: start: 20250304, end: 20250401
  2. ATOGEPANT [Suspect]
     Active Substance: ATOGEPANT
     Indication: Migraine prophylaxis
     Route: 048
     Dates: start: 20250409, end: 20250515
  3. NAPROXEN [Concomitant]
     Active Substance: NAPROXEN
     Indication: Migraine
     Route: 048
     Dates: start: 20241026
  4. LEVOTHYROXINE SODIUM [Concomitant]
     Active Substance: LEVOTHYROXINE SODIUM
     Indication: Autoimmune thyroiditis
     Route: 048
  5. ELETRIPTAN [Concomitant]
     Active Substance: ELETRIPTAN
     Indication: Migraine
     Route: 048
     Dates: start: 20241026
  6. AMITRIPTYLINE [Concomitant]
     Active Substance: AMITRIPTYLINE
     Indication: Product used for unknown indication
     Dates: start: 2025

REACTIONS (2)
  - Hypertension [Not Recovered/Not Resolved]
  - Hypertensive crisis [Recovered/Resolved]

NARRATIVE: CASE EVENT DATE: 20250325
